FAERS Safety Report 19059012 (Version 1)
Quarter: 2021Q1

REPORT INFORMATION
  Report Type: Spontaneous
  Country: CN (occurrence: CN)
  Receive Date: 20210325
  Receipt Date: 20210325
  Transmission Date: 20210420
  Serious: Yes (Hospitalization)
  Sender: FDA-Public Use
  Company Number: CN-PURDUE-USA-2021-0236327

PATIENT
  Age: 56 Year
  Sex: Male
  Weight: 63 kg

DRUGS (1)
  1. OXYCONTIN [Suspect]
     Active Substance: OXYCODONE HYDROCHLORIDE
     Indication: ANALGESIC THERAPY
     Dosage: 280 MG, Q12H
     Route: 048
     Dates: start: 20200824, end: 20200826

REACTIONS (5)
  - Cyanosis [Unknown]
  - Hyperhidrosis [Unknown]
  - Blood pressure decreased [Recovering/Resolving]
  - Dyspnoea [Recovering/Resolving]
  - Overdose [Unknown]

NARRATIVE: CASE EVENT DATE: 20200826
